FAERS Safety Report 9605882 (Version 1)
Quarter: 2013Q4

REPORT INFORMATION
  Report Type: Spontaneous
  Country: DK (occurrence: FI)
  Receive Date: 20131008
  Receipt Date: 20131008
  Transmission Date: 20140711
  Serious: Yes (Disabling)
  Sender: FDA-Public Use
  Company Number: FI-FRI-1000049750

PATIENT
  Age: 19 Year
  Sex: Female

DRUGS (3)
  1. CITALOPRAM [Suspect]
     Indication: DEPRESSION
     Dosage: 50 MG
     Route: 048
     Dates: start: 20110601, end: 20130819
  2. CITALOPRAM [Suspect]
     Indication: EATING DISORDER
  3. MERCILON [Concomitant]
     Indication: CONTRACEPTION
     Route: 048
     Dates: start: 20110601

REACTIONS (3)
  - Fatigue [Recovered/Resolved]
  - Memory impairment [Recovered/Resolved]
  - Overdose [Recovered/Resolved]
